FAERS Safety Report 6571343-0 (Version None)
Quarter: 2010Q1

REPORT INFORMATION
  Report Type: 
  Country: None (occurrence: None)
  Receive Date: 20100205
  Receipt Date: 20100128
  Transmission Date: 20100710
  Serious: Yes (Life-Threatening, Hospitalization)
  Sender: FDA-Public Use
  Company Number: FR-BIOGENIDEC-2010BI000456

PATIENT
  Age: 21 Year
  Sex: Female
  Weight: 67 kg

DRUGS (4)
  1. TYSABRI [Suspect]
     Indication: MULTIPLE SCLEROSIS
     Route: 042
     Dates: start: 20081024
  2. HUMALOG [Concomitant]
     Indication: DIABETES MELLITUS
     Route: 058
     Dates: end: 20090716
  3. LANTUS [Concomitant]
     Indication: DIABETES MELLITUS
     Route: 058
     Dates: end: 20090716
  4. DIFFU K [Concomitant]

REACTIONS (1)
  - DIABETIC KETOACIDOTIC HYPERGLYCAEMIC COMA [None]
